FAERS Safety Report 9149886 (Version 9)
Quarter: 2014Q3

REPORT INFORMATION
  Report Type: Spontaneous
  Country: US (occurrence: None)
  Receive Date: 20130212
  Receipt Date: 20140925
  Transmission Date: 20150326
  Serious: Yes (Hospitalization, Other)
  Sender: FDA-Public Use
  Company Number: 2013US001067

PATIENT
  Age: 66 Year
  Sex: Female
  Weight: 49 kg

DRUGS (21)
  1. MULTIVITAMINS [Concomitant]
     Active Substance: VITAMINS
  2. VITAMIN B12 [Concomitant]
     Active Substance: CYANOCOBALAMIN
  3. BENADRYL (DIPHENHYDRAMINE, PARACETAMOL, PHENYLPROPANOLAMINE HYDROCHLORIDE) [Concomitant]
  4. ALBUTEROL. [Concomitant]
     Active Substance: ALBUTEROL
  5. CAL + D (CALCIUM CARBONATE, COLECALCIFEROL) [Concomitant]
  6. MAGNESIUM (MAGNESIUM) [Concomitant]
  7. PLAVIX [Concomitant]
     Active Substance: CLOPIDOGREL BISULFATE
  8. LIPITOR [Concomitant]
     Active Substance: ATORVASTATIN CALCIUM
  9. DILTIAZEM HYDROCHLORIDE EXTENDED RELEASE [Concomitant]
     Active Substance: DILTIAZEM HYDROCHLORIDE
  10. LEVOTHYROXINE (LEVOTHYROXINE) [Concomitant]
  11. OMEGA-3 FATTY ACIDS [Concomitant]
     Active Substance: OMEGA-3 FATTY ACIDS
  12. SYMBICORT [Concomitant]
     Active Substance: BUDESONIDE\FORMOTEROL FUMARATE DIHYDRATE
  13. TEMAZEPAM (TEMAZEPAM) [Concomitant]
     Active Substance: TEMAZEPAM
  14. PONATINIB [Suspect]
     Active Substance: PONATINIB
     Indication: CHRONIC LYMPHOCYTIC LEUKAEMIA REFRACTORY
     Route: 048
     Dates: start: 20090729, end: 20130115
  15. PEPCID [Concomitant]
     Active Substance: FAMOTIDINE
  16. SPIRIVA [Concomitant]
     Active Substance: TIOTROPIUM BROMIDE MONOHYDRATE
  17. VITAMIN C [Concomitant]
     Active Substance: ASCORBIC ACID
  18. MIRALAX [Concomitant]
     Active Substance: POLYETHYLENE GLYCOL 3350
  19. ASPIRIN (ASPIRIN) [Concomitant]
     Active Substance: ASPIRIN
  20. LISINOPRIL. [Concomitant]
     Active Substance: LISINOPRIL
  21. ZYRTEC [Concomitant]
     Active Substance: CETIRIZINE HYDROCHLORIDE

REACTIONS (15)
  - Peripheral arterial occlusive disease [None]
  - Pulmonary hypertension [None]
  - Chronic obstructive pulmonary disease [None]
  - Disease recurrence [None]
  - Cardiac failure chronic [None]
  - Femoral artery occlusion [None]
  - Vasculitis [None]
  - Peripheral ischaemia [None]
  - Blood glucose increased [None]
  - Blood magnesium decreased [None]
  - Femur fracture [None]
  - Osteopenia [None]
  - Raynaud^s phenomenon [None]
  - Impaired healing [None]
  - Skin ulcer [None]

NARRATIVE: CASE EVENT DATE: 20130114
